FAERS Safety Report 6599191-6 (Version None)
Quarter: 2010Q1

REPORT INFORMATION
  Report Type: 
  Country: None (occurrence: None)
  Receive Date: 20100217
  Receipt Date: 20100127
  Transmission Date: 20100710
  Serious: Yes (Death, Hospitalization)
  Sender: FDA-Public Use
  Company Number: 2009AC000495

PATIENT
  Age: 56 Year
  Sex: Male
  Weight: 85.7298 kg

DRUGS (25)
  1. DIGOXIN [Suspect]
     Dosage: .125 MG;QOD;PO
     Route: 048
     Dates: start: 20080915
  2. DIGOXIN [Suspect]
     Dosage: 0.25 PO;QD;PO
     Route: 048
     Dates: start: 20060406
  3. AMIODARONE HCL [Concomitant]
  4. COREG [Concomitant]
  5. LIPITOR [Concomitant]
  6. ASPIRIN [Concomitant]
  7. KLOR-CON [Concomitant]
  8. TORSEMIDE [Concomitant]
  9. METOLAZONE [Concomitant]
  10. NIASPAN [Concomitant]
  11. CARAFATE [Concomitant]
  12. PACERONE [Concomitant]
  13. NEXIUM [Concomitant]
  14. LASIX [Concomitant]
  15. LIPITOR [Concomitant]
  16. SPIRONOLACTONE [Concomitant]
  17. FUROSEMIDE [Concomitant]
  18. DULCOLAX [Concomitant]
  19. DOXYCYCLINE [Concomitant]
  20. METOPROLOL SUCCINATE [Concomitant]
  21. ZANTAC [Concomitant]
  22. LOTREL [Concomitant]
  23. DYAZIDE [Concomitant]
  24. IBUPROFEN [Concomitant]
  25. SILVADENE [Concomitant]

REACTIONS (24)
  - ACUTE MYOCARDIAL INFARCTION [None]
  - ACUTE RESPIRATORY FAILURE [None]
  - ANXIETY [None]
  - APNOEA [None]
  - BLOOD CHLORIDE DECREASED [None]
  - BLOOD POTASSIUM DECREASED [None]
  - BLOOD URIC ACID INCREASED [None]
  - CARBON DIOXIDE INCREASED [None]
  - CARDIAC FAILURE CONGESTIVE [None]
  - CONDITION AGGRAVATED [None]
  - CORONARY ARTERY OCCLUSION [None]
  - DYSPNOEA [None]
  - HAEMATURIA [None]
  - HYPOCALCAEMIA [None]
  - HYPONATRAEMIA [None]
  - INJURY [None]
  - PAIN [None]
  - RENAL FAILURE ACUTE [None]
  - SEPSIS [None]
  - SKIN LESION [None]
  - SNORING [None]
  - THROMBOCYTOPENIA [None]
  - VENTRICULAR FIBRILLATION [None]
  - VENTRICULAR TACHYCARDIA [None]
